FAERS Safety Report 11063951 (Version 4)
Quarter: 2015Q3

REPORT INFORMATION
  Report Type: Report from Study
  Country: BR (occurrence: BR)
  Receive Date: 20150424
  Receipt Date: 20150707
  Transmission Date: 20151125
  Serious: Yes (Death, Hospitalization, Other)
  Sender: FDA-Public Use
  Company Number: BR-SA-2015SA032165

PATIENT
  Sex: Female

DRUGS (1)
  1. AUBAGIO [Suspect]
     Active Substance: TERIFLUNOMIDE
     Indication: MULTIPLE SCLEROSIS
     Route: 065
     Dates: start: 2014

REACTIONS (10)
  - Feeling abnormal [Unknown]
  - Asthenia [Unknown]
  - Pneumonia [Unknown]
  - Sepsis [Unknown]
  - Hypokinesia [Unknown]
  - Balance disorder [Unknown]
  - Septic shock [Fatal]
  - Systemic lupus erythematosus [Unknown]
  - Multiple sclerosis relapse [Unknown]
  - Pancytopenia [Unknown]

NARRATIVE: CASE EVENT DATE: 20150305
